FAERS Safety Report 24137395 (Version 1)
Quarter: 2024Q3

REPORT INFORMATION
  Report Type: Spontaneous
  Country: ES (occurrence: ES)
  Receive Date: 20240725
  Receipt Date: 20240725
  Transmission Date: 20241017
  Serious: Yes (Death, Other)
  Sender: ASTELLAS
  Company Number: ES-ASTELLAS-2024US020793

PATIENT
  Age: 7 Year
  Sex: Male
  Weight: 24 kg

DRUGS (2)
  1. ISAVUCONAZOLE [Suspect]
     Active Substance: ISAVUCONAZOLE
     Indication: Bronchopulmonary aspergillosis
     Route: 042
  2. ISAVUCONAZOLE [Suspect]
     Active Substance: ISAVUCONAZOLE
     Dosage: 10 MG/KG, ONCE DAILY (200 MG/MAX, DOSE)
     Route: 042

REACTIONS (3)
  - Bronchopulmonary aspergillosis [Fatal]
  - Disease progression [Fatal]
  - Product administered to patient of inappropriate age [Unknown]
